FAERS Safety Report 4340117-3 (Version None)
Quarter: 2004Q2

REPORT INFORMATION
  Report Type: 
  Country: None (occurrence: None)
  Receive Date: 20040416
  Receipt Date: 20040409
  Transmission Date: 20050107
  Serious: Yes (Other)
  Sender: FDA-Public Use
  Company Number: PHEH2004US04052

PATIENT
  Age: 90 Year
  Sex: Male

DRUGS (4)
  1. MIACALCIN [Suspect]
     Indication: OSTEOPOROSIS
     Dosage: 1 SPRAY QD
     Dates: start: 20010101
  2. ACTOS [Suspect]
     Indication: DIABETES MELLITUS NON-INSULIN-DEPENDENT
  3. EYE DROPS [Concomitant]
  4. HYTRIN [Concomitant]

REACTIONS (2)
  - ANAEMIA [None]
  - HIP FRACTURE [None]
